FAERS Safety Report 11776781 (Version 2)
Quarter: 2018Q1

REPORT INFORMATION
  Report Type: Spontaneous
  Country: TR (occurrence: TR)
  Receive Date: 20151125
  Receipt Date: 20180228
  Transmission Date: 20180508
  Serious: Yes (Life-Threatening, Other)
  Sender: FDA-Public Use
  Company Number: TR-SUN PHARMACEUTICAL INDUSTRIES LTD-2015R1-106413

PATIENT
  Age: 6 Year
  Sex: Male

DRUGS (1)
  1. PHENYTOIN. [Suspect]
     Active Substance: PHENYTOIN
     Indication: EPILEPSY
     Dosage: UNK
     Route: 065

REACTIONS (2)
  - Drug-disease interaction [Unknown]
  - Drug reaction with eosinophilia and systemic symptoms [Recovered/Resolved]
